FAERS Safety Report 6186931-3 (Version None)
Quarter: 2009Q2

REPORT INFORMATION
  Report Type: 
  Country: None (occurrence: None)
  Receive Date: 20090512
  Receipt Date: 20090504
  Transmission Date: 20091009
  Serious: Yes (Other)
  Sender: FDA-Public Use
  Company Number: CA-ASTRAZENECA-2009UW11667

PATIENT
  Age: 70 Year
  Sex: Male

DRUGS (3)
  1. CRESTOR [Suspect]
     Route: 048
     Dates: start: 20090101
  2. ASPIRIN [Concomitant]
  3. MULTI-VITAMINS [Concomitant]

REACTIONS (8)
  - ARTHRALGIA [None]
  - BACK PAIN [None]
  - CHROMATURIA [None]
  - EPISTAXIS [None]
  - HEPATIC ENZYME ABNORMAL [None]
  - MUSCULOSKELETAL PAIN [None]
  - NEURALGIA [None]
  - RENAL FUNCTION TEST ABNORMAL [None]
